FAERS Safety Report 24677871 (Version 2)
Quarter: 2025Q1

REPORT INFORMATION
  Report Type: Spontaneous
  Country: MY (occurrence: MY)
  Receive Date: 20241129
  Receipt Date: 20250318
  Transmission Date: 20250408
  Serious: Yes (Life-Threatening, Other)
  Sender: CSL BEHRING
  Company Number: MY-BEH-2024186348

PATIENT
  Age: 16 Year
  Sex: Female
  Weight: 34.7 kg

DRUGS (4)
  1. PRIVIGEN [Suspect]
     Active Substance: HUMAN IMMUNOGLOBULIN G
     Indication: Guillain-Barre syndrome
     Route: 065
  2. PRIVIGEN [Suspect]
     Active Substance: HUMAN IMMUNOGLOBULIN G
     Route: 065
  3. PRIVIGEN [Suspect]
     Active Substance: HUMAN IMMUNOGLOBULIN G
     Route: 042
  4. PRIVIGEN [Suspect]
     Active Substance: HUMAN IMMUNOGLOBULIN G
     Route: 042
     Dates: start: 20241009

REACTIONS (3)
  - Supraventricular tachycardia [Recovered/Resolved]
  - Drug ineffective [Unknown]
  - Arrhythmia [Unknown]

NARRATIVE: CASE EVENT DATE: 20241011
